FAERS Safety Report 8254628-1 (Version None)
Quarter: 2012Q2

REPORT INFORMATION
  Report Type: 
  Country: None (occurrence: None)
  Receive Date: 20120403
  Receipt Date: 20120323
  Transmission Date: 20120825
  Serious: Yes (Other)
  Sender: FDA-Public Use
  Company Number: JP-CELGENEUS-087-21880-11070061

PATIENT
  Sex: Male

DRUGS (22)
  1. ENTERONON-R [Concomitant]
     Dosage: 3 GRAM
     Route: 048
     Dates: end: 20110228
  2. DEXAMETHASONE ACETATE [Suspect]
     Indication: MULTIPLE MYELOMA
     Dosage: 16 MILLIGRAM
     Route: 048
     Dates: start: 20110218, end: 20110221
  3. PROMACTA [Concomitant]
     Indication: PROPHYLAXIS
     Dosage: 150 MILLIGRAM
     Route: 048
  4. BACTRIM [Concomitant]
     Indication: PROPHYLAXIS
     Dosage: 1 GRAM
     Route: 048
  5. METHYCOBAL [Concomitant]
     Indication: PROPHYLAXIS
     Dosage: 1500 MICROGRAM
     Route: 048
  6. ZOLPIDEM [Concomitant]
     Dosage: 5 MILLIGRAM
     Route: 048
     Dates: start: 20110428
  7. ZOLPIDEM [Concomitant]
     Dosage: 10 MILLIGRAM
     Route: 048
     Dates: start: 20110527
  8. REVLIMID [Suspect]
     Indication: MULTIPLE MYELOMA
     Dosage: 10 MILLIGRAM
     Route: 048
     Dates: start: 20110218, end: 20110309
  9. DEXAMETHASONE ACETATE [Suspect]
     Dosage: 16 MILLIGRAM
     Route: 048
     Dates: start: 20110415, end: 20110418
  10. RABEPRAZOLE SODIUM [Concomitant]
     Indication: PROPHYLAXIS
     Dosage: 10 MILLIGRAM
     Route: 048
     Dates: end: 20110330
  11. DEXAMETHASONE ACETATE [Suspect]
     Dosage: 16 MILLIGRAM
     Route: 048
     Dates: start: 20110527, end: 20110530
  12. DEXAMETHASONE ACETATE [Suspect]
     Dosage: 16 MILLIGRAM
     Route: 048
     Dates: start: 20110805, end: 20110812
  13. REVLIMID [Suspect]
     Dosage: 10 MILLIGRAM
     Route: 048
     Dates: start: 20110415, end: 20110505
  14. DEXAMETHASONE ACETATE [Suspect]
     Dosage: 16 MILLIGRAM
     Route: 048
     Dates: start: 20110708, end: 20110711
  15. ZOLPIDEM [Concomitant]
     Dosage: 5 MILLIGRAM
     Route: 048
     Dates: end: 20110302
  16. REVLIMID [Suspect]
     Dosage: 10 MILLIGRAM
     Route: 048
     Dates: start: 20110708, end: 20110728
  17. REVLIMID [Suspect]
     Dosage: 15 MILLIGRAM
     Route: 048
     Dates: start: 20110805, end: 20110818
  18. FAMOTIDINE [Concomitant]
     Indication: PROPHYLAXIS
     Dosage: 20 MILLIGRAM
     Route: 048
     Dates: start: 20110428
  19. REVLIMID [Suspect]
     Dosage: 10 MILLIGRAM
     Route: 048
     Dates: start: 20110318, end: 20110407
  20. DEXAMETHASONE ACETATE [Suspect]
     Dosage: 16 MILLIGRAM
     Route: 048
     Dates: start: 20110318, end: 20110321
  21. ZOLPIDEM [Concomitant]
     Dosage: 10 MILLIGRAM
     Route: 048
     Dates: start: 20110303, end: 20110427
  22. REVLIMID [Suspect]
     Dosage: 10 MILLIGRAM
     Route: 048
     Dates: start: 20110527, end: 20110616

REACTIONS (9)
  - PALPITATIONS [None]
  - DIARRHOEA [None]
  - ARRHYTHMIA [None]
  - FEELING ABNORMAL [None]
  - CHEST PAIN [None]
  - NEUTROPHIL COUNT DECREASED [None]
  - MALAISE [None]
  - PARAESTHESIA [None]
  - DIZZINESS [None]
